FAERS Safety Report 8078309-2 (Version None)
Quarter: 2012Q1

REPORT INFORMATION
  Report Type: 
  Country: None (occurrence: None)
  Receive Date: 20120127
  Receipt Date: 20110111
  Transmission Date: 20120608
  Serious: No
  Sender: FDA-Public Use
  Company Number: PR-ABBOTT-10P-131-0691231-00

PATIENT
  Sex: Female
  Weight: 102.15 kg

DRUGS (10)
  1. LOSARTAN POTASSIUM [Concomitant]
     Indication: HYPERTENSION
     Dosage: 100/25MG, 1 IN 1 D
  2. B12-VITAMIIN [Concomitant]
     Indication: VITAMIN SUPPLEMENTATION
     Route: 048
  3. PRAVASTATIN [Concomitant]
     Indication: LIPIDS
     Route: 048
  4. HUMIRA [Suspect]
     Indication: HIDRADENITIS
     Dosage: 80 MG LOADING DOSE
     Route: 058
     Dates: start: 20101210, end: 20101210
  5. MULTI-VITAMINS [Concomitant]
     Indication: VITAMIN SUPPLEMENTATION
     Route: 048
  6. LYRICA [Concomitant]
     Indication: BACK PAIN
     Dosage: BEFORE SLEEP
     Route: 048
  7. OMEGA 3-6-9 [Concomitant]
     Indication: VITAMIN SUPPLEMENTATION
     Route: 048
  8. VERAPAMIL [Concomitant]
     Indication: HYPERTENSION
     Route: 048
  9. HUMIRA [Suspect]
     Dates: start: 20101221
  10. NORFLEX [Concomitant]
     Indication: BACK PAIN
     Route: 048

REACTIONS (10)
  - INJECTION SITE ERYTHEMA [None]
  - INJECTION SITE PRURITUS [None]
  - HEADACHE [None]
  - INJECTION SITE RASH [None]
  - INJECTION SITE WARMTH [None]
  - INJECTION SITE REACTION [None]
  - DIARRHOEA [None]
  - ABDOMINAL PAIN UPPER [None]
  - INJECTION SITE CELLULITIS [None]
  - INJECTION SITE INDURATION [None]
